FAERS Safety Report 21391909 (Version 2)
Quarter: 2023Q4

REPORT INFORMATION
  Report Type: Spontaneous
  Country: ES (occurrence: ES)
  Receive Date: 20220929
  Receipt Date: 20231006
  Transmission Date: 20240110
  Serious: Yes (Life-Threatening, Hospitalization)
  Sender: FDA-Public Use
  Company Number: None

PATIENT
  Age: 58 Year

DRUGS (3)
  1. ULTRAVIST [Suspect]
     Active Substance: IOPROMIDE
     Indication: Abdomen scan
     Dosage: UNK UNK, ONCE
     Route: 042
     Dates: start: 20210429, end: 20210429
  2. AMOXICILLIN\CLAVULANIC ACID [Suspect]
     Active Substance: AMOXICILLIN\CLAVULANIC ACID
     Dosage: UNK
     Dates: start: 20210427
  3. ALBUTEROL [Concomitant]
     Active Substance: ALBUTEROL
     Dosage: UNK
     Route: 055
     Dates: start: 20210429

REACTIONS (3)
  - Anaphylactic shock [Not Recovered/Not Resolved]
  - Cardio-respiratory arrest [Recovered/Resolved with Sequelae]
  - Hypoxic-ischaemic encephalopathy [Not Recovered/Not Resolved]

NARRATIVE: CASE EVENT DATE: 20210429
